FAERS Safety Report 13721778 (Version 2)
Quarter: 2017Q3

REPORT INFORMATION
  Report Type: Spontaneous
  Country: US (occurrence: US)
  Receive Date: 20170706
  Receipt Date: 20170707
  Transmission Date: 20171127
  Serious: Yes (Other)
  Sender: FDA-Public Use
  Company Number: US-MYLANLABS-2017M1038075

PATIENT

DRUGS (1)
  1. NITROFURANTOIN. [Suspect]
     Active Substance: NITROFURANTOIN
     Indication: URINARY TRACT INFECTION
     Dosage: 100 MG, BID
     Route: 048

REACTIONS (4)
  - Transaminases increased [Recovered/Resolved]
  - Systemic inflammatory response syndrome [Recovered/Resolved]
  - Bundle branch block left [Recovered/Resolved]
  - Thrombocytopenia [Recovered/Resolved]
